FAERS Safety Report 7659791-9 (Version None)
Quarter: 2011Q3

REPORT INFORMATION
  Report Type: 
  Country: None (occurrence: None)
  Receive Date: 20110805
  Receipt Date: 20110726
  Transmission Date: 20111222
  Serious: Yes (Hospitalization)
  Sender: FDA-Public Use
  Company Number: CA-JNJFOC-20110500561

PATIENT
  Sex: Male
  Weight: 74 kg

DRUGS (1)
  1. REMICADE [Suspect]
     Indication: COLITIS
     Dosage: 34 INFUSIONS TO DATE
     Route: 042

REACTIONS (3)
  - RECTAL HAEMORRHAGE [None]
  - ANAEMIA [None]
  - HAEMORRHOIDS [None]
